FAERS Safety Report 8297564-7 (Version None)
Quarter: 2012Q2

REPORT INFORMATION
  Report Type: 
  Country: None (occurrence: None)
  Receive Date: 20120419
  Receipt Date: 20120413
  Transmission Date: 20120825
  Serious: Yes (Other)
  Sender: FDA-Public Use
  Company Number: PHHY2012JP032127

PATIENT
  Sex: Male

DRUGS (1)
  1. GLEEVEC [Suspect]
     Indication: CHRONIC MYELOID LEUKAEMIA
     Dosage: 400 MG/ DAILY
     Route: 048
     Dates: start: 20100101

REACTIONS (2)
  - INTRAOCULAR PRESSURE INCREASED [None]
  - CRANIAL NERVE PARALYSIS [None]
